FAERS Safety Report 4560530-9 (Version None)
Quarter: 2005Q1

REPORT INFORMATION
  Report Type: 
  Country: None (occurrence: None)
  Receive Date: 20050125
  Receipt Date: 20050117
  Transmission Date: 20050727
  Serious: Yes (Hospitalization)
  Sender: FDA-Public Use
  Company Number: US-GLAXOSMITHKLINE-A0540953A

PATIENT
  Age: 69 Year
  Sex: Female

DRUGS (2)
  1. FLOVENT [Suspect]
     Indication: ASTHMA
     Route: 055
     Dates: end: 20000501
  2. SEREVENT [Suspect]
     Indication: ASTHMA
     Route: 055
     Dates: end: 20000501

REACTIONS (5)
  - ASTHMA [None]
  - DRUG INEFFECTIVE [None]
  - DYSPHONIA [None]
  - MYOCARDIAL INFARCTION [None]
  - PHARYNGOLARYNGEAL PAIN [None]
